FAERS Safety Report 5233337-7 (Version None)
Quarter: 2007Q1

REPORT INFORMATION
  Report Type: 
  Country: None (occurrence: None)
  Receive Date: 20070206
  Receipt Date: 20070122
  Transmission Date: 20070707
  Serious: Yes (Hospitalization)
  Sender: FDA-Public Use
  Company Number: US018233

PATIENT
  Age: 76 Year
  Sex: Male
  Weight: 84.8226 kg

DRUGS (6)
  1. TRISENOX [Suspect]
     Indication: MYELODYSPLASTIC SYNDROME
     Dosage: 0.25 MG/KG TWICE WEEKLY Q72HR INTRAVENOUS DRIP
     Route: 041
     Dates: start: 20060101
  2. EXJADE [Suspect]
     Indication: IRON OVERLOAD
     Dosage: 2000 MG QD
     Dates: start: 20060701
  3. THALIDOMIDE [Concomitant]
  4. ACYCLOVIR [Concomitant]
  5. ASCORBIC ACID [Concomitant]
  6. K-DUR 10 [Concomitant]

REACTIONS (10)
  - ASCITES [None]
  - CARDIAC FAILURE CONGESTIVE [None]
  - ELECTROCARDIOGRAM QT PROLONGED [None]
  - FLUID OVERLOAD [None]
  - MITRAL VALVE INCOMPETENCE [None]
  - PLEURAL EFFUSION [None]
  - PNEUMONIA [None]
  - SPLENOMEGALY [None]
  - TRICUSPID VALVE INCOMPETENCE [None]
  - WEIGHT DECREASED [None]
